FAERS Safety Report 5911352-5 (Version None)
Quarter: 2008Q4

REPORT INFORMATION
  Report Type: 
  Country: None (occurrence: None)
  Receive Date: 20081007
  Receipt Date: 20080926
  Transmission Date: 20090506
  Serious: Yes (Death, Hospitalization)
  Sender: FDA-Public Use
  Company Number: PL-PFIZER INC-2008082976

PATIENT
  Age: 24 Year
  Sex: Female

DRUGS (5)
  1. DOXEPIN HCL [Suspect]
  2. VERAPAMIL HYDROCHLORIDE [Suspect]
  3. MIANSERIN [Suspect]
  4. LEXOTAN [Suspect]
  5. KETONAL [Suspect]

REACTIONS (1)
  - OVERDOSE [None]
